FAERS Safety Report 6726149-6 (Version None)
Quarter: 2010Q2

REPORT INFORMATION
  Report Type: 
  Country: None (occurrence: None)
  Receive Date: 20100514
  Receipt Date: 20100507
  Transmission Date: 20101027
  Serious: Yes (Hospitalization)
  Sender: FDA-Public Use
  Company Number: US-PFIZER INC-2010058039

PATIENT
  Sex: Male
  Weight: 81.6 kg

DRUGS (3)
  1. LIPITOR [Suspect]
     Indication: BLOOD CHOLESTEROL INCREASED
     Dosage: 40 MG, 1X/DAY
     Route: 048
     Dates: start: 19990101
  2. STALEVO 100 [Concomitant]
     Indication: PARKINSON'S DISEASE
     Dosage: 37.5/150/200MG TWO TABLETS ONCE DAILY
     Route: 048
  3. REQUIP [Concomitant]
     Indication: PARKINSON'S DISEASE
     Dosage: 2 MG, 1X/DAY
     Route: 048

REACTIONS (2)
  - KNEE ARTHROPLASTY [None]
  - WEIGHT DECREASED [None]
